FAERS Safety Report 9521306 (Version 1)
Quarter: 2013Q1

REPORT INFORMATION
  Report Type: Spontaneous
  Country: US (occurrence: None)
  Receive Date: 20130305
  Receipt Date: 20130305
  Transmission Date: 20140127
  Serious: Yes (Other)
  Sender: FDA-Public Use
  Company Number: 163-21880-12072503

PATIENT
  Age: 76 Year
  Sex: Female

DRUGS (4)
  1. REVLIMID [Suspect]
     Dosage: 10 MG, 28 IN 28 D, PO
     Route: 048
     Dates: start: 20120709
  2. HUPERZINE SERRATE A (HUPERZINE A) (UNKNOWN) [Concomitant]
  3. SUPER B-COMPLEX/VIT C/ FA (COMBEVIT C) (UNKNOWN) [Concomitant]
  4. BIOFLAVONOID-1000 (UNKNOWN) [Concomitant]

REACTIONS (3)
  - Blister [None]
  - Swelling [None]
  - Pruritus [None]
